FAERS Safety Report 9413792 (Version 1)
Quarter: 2013Q3

REPORT INFORMATION
  Report Type: Spontaneous
  Country: US (occurrence: US)
  Receive Date: 20130723
  Receipt Date: 20130723
  Transmission Date: 20140515
  Serious: Yes (Other)
  Sender: FDA-Public Use
  Company Number: US-SANOFI-AVENTIS-2013SA072908

PATIENT
  Sex: 0

DRUGS (3)
  1. ARAVA [Suspect]
     Route: 065
  2. METHOTREXATE [Suspect]
     Route: 065
  3. SUTENT [Concomitant]

REACTIONS (1)
  - Renal cell carcinoma [Unknown]
